FAERS Safety Report 17847995 (Version 2)
Quarter: 2020Q2

REPORT INFORMATION
  Report Type: Spontaneous
  Country: US (occurrence: US)
  Receive Date: 20200601
  Receipt Date: 20200608
  Transmission Date: 20200714
  Serious: Yes (Hospitalization, Other)
  Sender: FDA-Public Use
  Company Number: US-BAUSCH-BL-2018-020446

PATIENT
  Age: 79 Year
  Sex: Male
  Weight: 81.72 kg

DRUGS (14)
  1. XIFAXAN [Suspect]
     Active Substance: RIFAXIMIN
     Indication: HEPATIC CIRRHOSIS
     Dosage: STARTED IN MAY/2017 OR JUN/2017
     Route: 048
     Dates: start: 2017, end: 20180725
  2. XIFAXAN [Suspect]
     Active Substance: RIFAXIMIN
     Route: 048
     Dates: end: 20200517
  3. MAGNESIUM OXIDE. [Concomitant]
     Active Substance: MAGNESIUM OXIDE
     Indication: PRODUCT USED FOR UNKNOWN INDICATION
     Dosage: 400 MG (241.3 MG MAGNESIUM)
     Route: 048
  4. MAGNESIUM [Concomitant]
     Active Substance: MAGNESIUM
     Indication: PRODUCT USED FOR UNKNOWN INDICATION
     Route: 048
  5. XIFAXAN [Suspect]
     Active Substance: RIFAXIMIN
     Route: 048
     Dates: end: 20190228
  6. METFORMIN [Concomitant]
     Active Substance: METFORMIN HYDROCHLORIDE
     Indication: PRODUCT USED FOR UNKNOWN INDICATION
     Route: 048
  7. FERROUS SULFATE. [Concomitant]
     Active Substance: FERROUS SULFATE
     Indication: PRODUCT USED FOR UNKNOWN INDICATION
     Dosage: 325 MG (65 MG IRON)
     Route: 048
  8. XIFAXAN [Suspect]
     Active Substance: RIFAXIMIN
     Route: 048
     Dates: start: 2019, end: 201910
  9. LACTULOSE. [Concomitant]
     Active Substance: LACTULOSE
     Indication: PRODUCT USED FOR UNKNOWN INDICATION
     Dosage: 10 GM/15 ML, TAKE 2 TEASPOONS AS NEEDED FOR 30 DAYS
     Route: 048
  10. IRON [Concomitant]
     Active Substance: IRON
     Indication: PRODUCT USED FOR UNKNOWN INDICATION
     Route: 048
  11. ENTRESTO [Concomitant]
     Active Substance: SACUBITRIL\VALSARTAN
     Indication: PRODUCT USED FOR UNKNOWN INDICATION
     Dosage: 49 TO 51 MG, TAKE ONE TABLET
     Route: 048
  12. FUROSEMIDE. [Concomitant]
     Active Substance: FUROSEMIDE
     Indication: PRODUCT USED FOR UNKNOWN INDICATION
     Route: 048
  13. BACTRIM DS [Concomitant]
     Active Substance: SULFAMETHOXAZOLE\TRIMETHOPRIM
     Indication: PRODUCT USED FOR UNKNOWN INDICATION
     Dosage: 800-160 MG, TAKE HALF TABLET EVERY 3 DAYS
     Route: 048
  14. XIFAXAN [Suspect]
     Active Substance: RIFAXIMIN
     Route: 048
     Dates: start: 201910, end: 20191019

REACTIONS (27)
  - Fatigue [Not Recovered/Not Resolved]
  - Dizziness [Unknown]
  - Radiation proctitis [Unknown]
  - Mental status changes [Not Recovered/Not Resolved]
  - Abdominal pain lower [Unknown]
  - Intentional product use issue [Unknown]
  - Somnolence [Not Recovered/Not Resolved]
  - Weight decreased [Not Recovered/Not Resolved]
  - Decreased appetite [Unknown]
  - Cholelithiasis [Unknown]
  - Portal hypertension [Not Recovered/Not Resolved]
  - Abdominal distension [Not Recovered/Not Resolved]
  - Therapy interrupted [Unknown]
  - Cryptogenic cirrhosis [Not Recovered/Not Resolved]
  - Oesophageal varices haemorrhage [Unknown]
  - Gastric varices haemorrhage [Unknown]
  - Hepatic encephalopathy [Not Recovered/Not Resolved]
  - Troponin increased [Unknown]
  - Oedema [Recovering/Resolving]
  - Constipation [Not Recovered/Not Resolved]
  - Flatulence [Unknown]
  - Platelet disorder [Not Recovered/Not Resolved]
  - Vomiting [Not Recovered/Not Resolved]
  - Nausea [Not Recovered/Not Resolved]
  - Product supply issue [Unknown]
  - Haematuria [Recovering/Resolving]
  - Acute kidney injury [Recovering/Resolving]

NARRATIVE: CASE EVENT DATE: 2017
